FAERS Safety Report 8951332 (Version 2)
Quarter: 2013Q1

REPORT INFORMATION
  Report Type: Spontaneous
  Country: US (occurrence: None)
  Receive Date: 20121107
  Receipt Date: 20130214
  Transmission Date: 20140127
  Serious: Yes (Other)
  Sender: FDA-Public Use
  Company Number: 2011027845

PATIENT
  Age: 65 Year
  Sex: Female
  Weight: 88.45 kg

DRUGS (55)
  1. PRIVIGEN (IMMUNE GLOBULIN INTRAVENOUS (HUMAN) 10% LIQUID) [Suspect]
     Indication: IMMUNODEFICIENCY COMMON VARIABLE
     Route: 042
     Dates: start: 20101011
  2. MINOCYCLINE (MINOCYCLINE) [Concomitant]
  3. TRAMADOL (TRAMADOL) [Concomitant]
  4. HEPARIN (HEPARIN) [Concomitant]
  5. CYMBALTA (DULOXETINE HYDROCHLORIDE) [Concomitant]
  6. SOMA (CARISOPRODOL) [Concomitant]
  7. ASACOL (MESALAZINE) [Concomitant]
  8. NEXIUM (ESOMEPRAZOLE MAGNESIUM) [Concomitant]
  9. VYVANASE (PSYCHOSTIMULANTS AND NOOTROPICS) [Concomitant]
  10. VYTORIN (INEGY) [Concomitant]
  11. ASTELIN (DIPROPHYLLINE) [Concomitant]
  12. CARDIZEM (DILTIAZEM) [Concomitant]
  13. BENICAR (OLMESARTAN MEDOXOMIL) [Concomitant]
  14. TRAZODONE (TRAZODONE) [Concomitant]
  15. ACTONEL (RISEDRONATE SODIUM) [Concomitant]
  16. ZOFRAN (ONDANSETRON) [Concomitant]
  17. PAMINE (HYOSCINE METHOBROMIDE) [Concomitant]
  18. LUNESTA (ESZOPICLONE) [Concomitant]
  19. CICLOPIROX (CICLOPIROX) [Concomitant]
  20. CLINDAMYCIN (CLINDAMYCIN) [Concomitant]
  21. CARMOL (UREA) [Concomitant]
  22. ACETAMINOPHEN (PARACETAMOL) [Concomitant]
  23. DEXAMETHASONE (DEXAMETHASONE) [Concomitant]
  24. TRANSDERM (GLYCERYL TRINITRATE) [Concomitant]
  25. VICODIN (VICODIN) [Concomitant]
  26. SUMATRIPTAN (SUMATRIPTAN) [Concomitant]
  27. DILTIAZEM [Concomitant]
  28. VITAMIN D (ERGOCALCIFEROL) [Concomitant]
  29. DENAVIR (PENCICLOVIR) [Concomitant]
  30. ASMANEX [Concomitant]
  31. IMODIUM (LOPERAMIDE HYDROCHLORIDE) [Concomitant]
  32. PHAZYME (DIMETICONE, ACTIVATED) [Concomitant]
  33. BACTROBAN (MUPIROCIN) [Concomitant]
  34. ALVESCO (CICLESONIDE) [Concomitant]
  35. GAS X (DIMETICONE, ACTIVATED) [Concomitant]
  36. PATANOL (OLOPATADINE HYDROCHLORIDE) [Concomitant]
  37. MILK OF MAGNESIA (MAGNESIUM HYDROXIDE) [Concomitant]
  38. TUMS (CALCIUM CARBONATE) [Concomitant]
  39. VENTOLIN (SALBUTAMOL) [Concomitant]
  40. PEPTO-BISMOL (BISMUTH SUBSALICYLATE) [Concomitant]
  41. MUCINEX (GUAIFENESIN) [Concomitant]
  42. VYTORIN (INEGY) [Concomitant]
  43. MULTIVITAMIN (DAILY MULTIVITAMIN) [Concomitant]
  44. VITAMIN C [Concomitant]
  45. MAGNESIUM (MAGNESIUM) [Concomitant]
  46. CO-Q10 (UBIDECARENONE) [Concomitant]
  47. DIPHENHYDRAMINE (DIPHENHYDRAMINE) [Concomitant]
  48. NORMAL SALINE (SODIUM CHLORIDE) [Concomitant]
  49. SODIUM CHLORIDE (SODIUM CHLORIDE) [Concomitant]
  50. EPI-PAN (EPINEPHRINE HYDROCHLORIDE) [Concomitant]
  51. SUMATRIPTAN SUCCINATE (SUMATRIPTAN SUCCINATE) [Concomitant]
  52. ATROVENT (IPRATROPIUM BROMIDE) [Concomitant]
  53. CALCIUM (CALCIUM) [Concomitant]
  54. VITAMIN D (ERGOCALCIFEROL) [Concomitant]
  55. TOPAMAX (TOPIRAMATE) [Concomitant]

REACTIONS (7)
  - Back pain [None]
  - Hypertension [None]
  - Upper respiratory tract infection [None]
  - Sinusitis [None]
  - Infusion related reaction [None]
  - Headache [None]
  - Nausea [None]
